FAERS Safety Report 9506077 (Version 1)
Quarter: 2013Q1

REPORT INFORMATION
  Report Type: Spontaneous
  Country: US (occurrence: None)
  Receive Date: 20130205
  Receipt Date: 20130205
  Transmission Date: 20140127
  Serious: Yes (Other)
  Sender: FDA-Public Use
  Company Number: AXC-2012-000529

PATIENT
  Age: 43 Year
  Sex: Female

DRUGS (3)
  1. URSODEOXYCHOLIC ACID [Suspect]
     Indication: CHOLESTASIS OF PREGNANCY
     Dosage: UNK, UNKNOAN
  2. URSODEOXYCHOLIC ACID [Suspect]
     Dosage: UNK, UNKNOAN
  3. HYDROXYZINE [Suspect]
     Indication: CHOLESTASIS OF PREGNANCY
     Dosage: UNK{ UNKNOWN

REACTIONS (2)
  - Drug ineffective [None]
  - Maternal exposure during pregnancy [None]
